FAERS Safety Report 11261692 (Version 1)
Quarter: 2015Q3

REPORT INFORMATION
  Report Type: Spontaneous
  Country: AU (occurrence: AU)
  Receive Date: 20150710
  Receipt Date: 20150710
  Transmission Date: 20151125
  Serious: Yes (Other)
  Sender: FDA-Public Use
  Company Number: AU-GUERBET LLC-1040462

PATIENT
  Age: 76 Year
  Sex: Male

DRUGS (1)
  1. HEXABRIX [Suspect]
     Active Substance: IOXAGLATE MEGLUMINE\IOXAGLATE SODIUM

REACTIONS (4)
  - Hypotension [Unknown]
  - Hyperhidrosis [Unknown]
  - Somnolence [Unknown]
  - Bronchospasm [Unknown]
